FAERS Safety Report 9345309 (Version 2)
Quarter: 2013Q4

REPORT INFORMATION
  Report Type: Spontaneous
  Country: US (occurrence: US)
  Receive Date: 20130613
  Receipt Date: 20131213
  Transmission Date: 20140711
  Serious: Yes (Hospitalization)
  Sender: FDA-Public Use
  Company Number: US-B.I. PHARMACEUTICALS,INC./RIDGEFIELD-2013-BI-16407BP

PATIENT
  Age: 86 Year
  Sex: Male
  Weight: 90.72 kg

DRUGS (9)
  1. PRADAXA [Suspect]
     Indication: ANTICOAGULANT THERAPY
     Dates: start: 20110526, end: 20110613
  2. PRADAXA [Suspect]
     Indication: ATRIAL FIBRILLATION
  3. ASPIRIN [Suspect]
  4. MULTAQ [Concomitant]
     Indication: ATRIAL FIBRILLATION
     Dosage: 400 MG
     Route: 048
  5. EDECRIN [Concomitant]
     Dosage: 50 MG
     Route: 048
     Dates: start: 2009
  6. CRESTOR [Concomitant]
     Dosage: 10 MG
     Route: 048
     Dates: start: 2009
  7. MULTIVITAMIN [Concomitant]
     Route: 048
  8. FISH OIL [Concomitant]
     Route: 048
  9. CALTRATE [Concomitant]
     Route: 048

REACTIONS (2)
  - Upper gastrointestinal haemorrhage [Unknown]
  - Anaemia [Unknown]
